FAERS Safety Report 15081374 (Version 1)
Quarter: 2018Q2

REPORT INFORMATION
  Report Type: Spontaneous
  Country: US (occurrence: US)
  Receive Date: 20180628
  Receipt Date: 20180628
  Transmission Date: 20180711
  Serious: No
  Sender: FDA-Public Use
  Company Number: US-BAYER-2018-116267

PATIENT
  Age: 7 Month
  Sex: Female
  Weight: 9 kg

DRUGS (2)
  1. MIRALAX [Suspect]
     Active Substance: POLYETHYLENE GLYCOL 3350
     Indication: GASTROINTESTINAL DISORDER
     Dosage: A CAPFUL OF MIRALAX MIXED INTO 8-12 OUNCES OF WATER
     Route: 048
     Dates: start: 201712
  2. MIRALAX [Suspect]
     Active Substance: POLYETHYLENE GLYCOL 3350
     Indication: GASTROINTESTINAL DISORDER
     Dosage: 3 TEASPOONS MIXED IN WITH 6 OUNCES OF WATER ON A DAILY BASIS
     Route: 048
     Dates: end: 20180618

REACTIONS (2)
  - Product prescribing issue [Unknown]
  - Product use issue [Unknown]

NARRATIVE: CASE EVENT DATE: 201712
